FAERS Safety Report 10287721 (Version 1)
Quarter: 2014Q3

REPORT INFORMATION
  Report Type: Spontaneous
  Country: US (occurrence: None)
  Receive Date: 20140707
  Receipt Date: 20140707
  Transmission Date: 20150326
  Serious: Yes (Other)
  Sender: FDA-Public Use
  Company Number: AUR-APL-2014-06694

PATIENT
  Sex: Female

DRUGS (2)
  1. CEFDINIR. [Suspect]
     Active Substance: CEFDINIR
     Indication: SINUS DISORDER
     Dates: start: 20140619, end: 20140620
  2. CEFDINIR. [Suspect]
     Active Substance: CEFDINIR
     Indication: UPPER RESPIRATORY TRACT INFECTION
     Dates: start: 20140619, end: 20140620

REACTIONS (4)
  - Condition aggravated [None]
  - Erythema [None]
  - Swelling face [None]
  - Feeling hot [None]

NARRATIVE: CASE EVENT DATE: 20140619
